FAERS Safety Report 25162460 (Version 1)
Quarter: 2025Q2

REPORT INFORMATION
  Report Type: Report from Study
  Country: ZA (occurrence: ZA)
  Receive Date: 20250404
  Receipt Date: 20250404
  Transmission Date: 20250717
  Serious: Yes (Hospitalization, Other)
  Sender: BIOVITRUM
  Company Number: ZA-AstraZeneca-CH-00839796A

PATIENT
  Sex: Female

DRUGS (1)
  1. PALIVIZUMAB [Suspect]
     Active Substance: PALIVIZUMAB
     Indication: Respiratory syncytial virus infection
     Route: 030
     Dates: start: 20250129

REACTIONS (1)
  - Respiratory syncytial virus infection [Unknown]
